FAERS Safety Report 4878675-2 (Version None)
Quarter: 2006Q1

REPORT INFORMATION
  Report Type: 
  Country: None (occurrence: None)
  Receive Date: 20060112
  Receipt Date: 20050907
  Transmission Date: 20060701
  Serious: Yes (Other)
  Sender: FDA-Public Use
  Company Number: PHHO2005CA14141

PATIENT
  Age: 39 Year
  Sex: Female
  Weight: 70 kg

DRUGS (7)
  1. CLOZARIL [Suspect]
     Indication: PSYCHOTIC DISORDER
     Dosage: 37.5 MG QPM, 125 MG QHS
     Route: 048
     Dates: start: 19970601
  2. CLOZARIL [Suspect]
     Dosage: 50 MG QPM, 125 MG QHS
     Route: 048
     Dates: start: 20050621
  3. CLOZARIL [Suspect]
     Dosage: 62.5 MG QPM, 125 MG QHS
     Route: 048
     Dates: end: 20050907
  4. LEVOTHYROXINE SODIUM [Concomitant]
     Dosage: 0.112 MG, UNK
     Dates: start: 19840101
  5. LORAZEPAM [Concomitant]
     Dosage: 1 MG, PRN (0-2 DAILY)
     Dates: start: 19970101
  6. VITAMIN D [Concomitant]
     Dosage: 800 IU, FOR MANY YEARS
  7. MULTIVITAMIN [Concomitant]
     Dosage: UNK, UNK FOR MANY YEARS

REACTIONS (19)
  - ANOREXIA [None]
  - ASTHENIA [None]
  - DECREASED APPETITE [None]
  - DEHYDRATION [None]
  - HYPOKALAEMIA [None]
  - LETHARGY [None]
  - NEUTROPENIA [None]
  - OESOPHAGITIS [None]
  - PHARYNGOLARYNGEAL PAIN [None]
  - PLATELET COUNT DECREASED [None]
  - PSYCHOTIC DISORDER [None]
  - RED BLOOD CELL COUNT DECREASED [None]
  - RESTLESSNESS [None]
  - RETCHING [None]
  - SCHIZOPHRENIA [None]
  - VIRAL INFECTION [None]
  - VOMITING [None]
  - WEIGHT DECREASED [None]
  - WHITE BLOOD CELL COUNT DECREASED [None]
